FAERS Safety Report 9994572 (Version 4)
Quarter: 2014Q2

REPORT INFORMATION
  Report Type: Report from Study
  Country: DE (occurrence: DE)
  Receive Date: 20140311
  Receipt Date: 20140502
  Transmission Date: 20141212
  Serious: Yes (Death, Life-Threatening, Hospitalization)
  Sender: FDA-Public Use
  Company Number: DE-AMGEN-DEUCT2014016887

PATIENT
  Age: 70 Year
  Sex: Male
  Weight: 86 kg

DRUGS (12)
  1. ASS [Concomitant]
     Dosage: UNK
  2. PANTOZOL                           /01263204/ [Concomitant]
     Dosage: 40 MG, UNK
  3. TORASEMIDE [Concomitant]
     Dosage: 10 DF, UNK
  4. AMLODIPINE [Concomitant]
     Dosage: 10 MG, UNK
  5. METFORMIN [Concomitant]
     Dosage: 850 MG, UNK
  6. SIMVASTATIN [Concomitant]
     Dosage: 40 MG, UNK
  7. CARVEDILOL [Concomitant]
     Dosage: 12.5 DF, UNK
  8. PROTAPHAN [Concomitant]
     Dosage: UNK
  9. HUMINSULIN [Concomitant]
     Dosage: UNK
  10. PREDNISOLONE [Concomitant]
     Dosage: 5 MG DAILY (10)
  11. ETANERCEPT [Suspect]
     Indication: PRODUCT USED FOR UNKNOWN INDICATION
     Dosage: 25 MG, 2X/WEEK
     Route: 065
     Dates: start: 20130715, end: 201312
  12. MARCUMAR [Concomitant]
     Dosage: 3 MG, UNK

REACTIONS (1)
  - Lung neoplasm malignant [Fatal]
